FAERS Safety Report 9719158 (Version 4)
Quarter: 2014Q2

REPORT INFORMATION
  Report Type: Spontaneous
  Country: JP (occurrence: JP)
  Receive Date: 20131127
  Receipt Date: 20140521
  Transmission Date: 20141212
  Serious: Yes (Hospitalization)
  Sender: FDA-Public Use
  Company Number: PHHY2013JP050128

PATIENT
  Sex: Female
  Weight: 2 kg

DRUGS (3)
  1. SANDOSTATIN [Suspect]
     Indication: CHYLOTHORAX
     Route: 058
     Dates: start: 20120326, end: 20120502
  2. SANDOSTATIN [Suspect]
     Indication: OFF LABEL USE
  3. MEDIUM-CHAIN TRIGLYCERIDES [Suspect]

REACTIONS (5)
  - Eosinophil count increased [Unknown]
  - Jaundice cholestatic [Recovering/Resolving]
  - Hepatic enzyme increased [Unknown]
  - Hyperbilirubinaemia [Recovered/Resolved]
  - Faeces pale [Recovering/Resolving]
